FAERS Safety Report 8922473 (Version 1)
Quarter: 2012Q4

REPORT INFORMATION
  Report Type: 
  Country: JP (occurrence: JP)
  Receive Date: 20121126
  Receipt Date: 20121126
  Transmission Date: 20130627
  Serious: Yes (Hospitalization)
  Sender: FDA-Public Use
  Company Number: JP-JNJFOC-20121002400

PATIENT
  Age: 51 Year
  Sex: Male

DRUGS (15)
  1. REMICADE [Suspect]
     Indication: PUSTULAR PSORIASIS
     Route: 042
     Dates: start: 20120118
  2. REMICADE [Suspect]
     Indication: PUSTULAR PSORIASIS
     Dosage: 6th dose
     Route: 042
     Dates: start: 20120815
  3. NON-PYRINE COLD PREPARATION [Concomitant]
     Indication: NASOPHARYNGITIS
     Route: 048
  4. OMEPRAL [Concomitant]
     Indication: GASTRITIS
     Route: 048
  5. ACTONEL [Concomitant]
     Indication: OSTEOPOROSIS
     Route: 048
  6. ALFAROL [Concomitant]
     Indication: OSTEOPOROSIS
     Route: 048
  7. MAGLAX [Concomitant]
     Indication: GASTRITIS
     Route: 048
  8. FLOMAX [Concomitant]
     Indication: NASOPHARYNGITIS
     Route: 048
  9. ASTOMIN [Concomitant]
     Indication: NASOPHARYNGITIS
     Route: 048
  10. MUCODYNE [Concomitant]
     Indication: NASOPHARYNGITIS
     Route: 048
  11. MUCOSOLVAN [Concomitant]
     Indication: NASOPHARYNGITIS
     Route: 048
  12. ACUATIM [Concomitant]
     Indication: ACNE
     Route: 065
  13. NIZORAL [Concomitant]
     Indication: TINEA INFECTION
     Route: 065
  14. ATARAX [Concomitant]
     Indication: PRURITUS
     Route: 048
  15. ISCOTIN [Concomitant]
     Indication: ANTIBIOTIC PROPHYLAXIS
     Route: 065

REACTIONS (2)
  - Interstitial lung disease [Recovering/Resolving]
  - Orthostatic hypotension [Recovered/Resolved]
